FAERS Safety Report 14820028 (Version 1)
Quarter: 2018Q2

REPORT INFORMATION
  Report Type: Spontaneous
  Country: US (occurrence: US)
  Receive Date: 20180427
  Receipt Date: 20180427
  Transmission Date: 20180711
  Serious: No
  Sender: FDA-Public Use
  Company Number: US-ASTRAZENECA-2018SE42396

PATIENT
  Sex: Male

DRUGS (2)
  1. PULMICORT FLEXHALER [Suspect]
     Active Substance: BUDESONIDE
     Route: 055
  2. ALBUTEROL. [Concomitant]
     Active Substance: ALBUTEROL

REACTIONS (2)
  - Dizziness [Unknown]
  - Palpitations [Unknown]
